FAERS Safety Report 8534482 (Version 3)
Quarter: 2012Q4

REPORT INFORMATION
  Report Type: 
  Country: US (occurrence: US)
  Receive Date: 20120326
  Receipt Date: 20121030
  Transmission Date: 20130627
  Serious: Yes (Death, Hospitalization, Other)
  Sender: FDA-Public Use
  Company Number: PHHY2011US18281

PATIENT
  Sex: Female
  Weight: 107 kg

DRUGS (4)
  1. TASIGNA [Suspect]
     Indication: CHRONIC MYELOID LEUKAEMIA
     Dosage: 200 mg, BID
     Route: 048
     Dates: start: 20110201
  2. TASIGNA [Suspect]
     Dosage: 200 mg, BID
     Route: 048
     Dates: start: 20111004
  3. TASIGNA [Suspect]
     Dosage: 200 mg, dialy for 5 days a week, skipping monday and friday
     Route: 048
  4. GLEEVEC [Suspect]
     Dosage: UNK UKN, UNK
     Dates: start: 20090114, end: 20110131

REACTIONS (12)
  - Death [Fatal]
  - Large intestinal haemorrhage [Recovering/Resolving]
  - Arterial rupture [Recovering/Resolving]
  - Anaemia [Recovering/Resolving]
  - Thrombocytopenia [Recovering/Resolving]
  - White blood cell count decreased [Recovering/Resolving]
  - Oral discomfort [Unknown]
  - Dyspnoea [Unknown]
  - Fatigue [Unknown]
  - Constipation [Unknown]
  - Pruritus [Unknown]
  - Scratch [Unknown]
